FAERS Safety Report 19488426 (Version 1)
Quarter: 2021Q3

REPORT INFORMATION
  Report Type: Spontaneous
  Country: PR (occurrence: PR)
  Receive Date: 20210702
  Receipt Date: 20210702
  Transmission Date: 20211014
  Serious: No
  Sender: FDA-Public Use
  Company Number: PR-BAYER-2021-162003

PATIENT
  Age: 54 Year
  Sex: Male

DRUGS (1)
  1. STIVARGA [Suspect]
     Active Substance: REGORAFENIB
     Indication: GASTROINTESTINAL STROMAL TUMOUR
     Dosage: DAILY DOSE 120 MG ON 21 DAYS AND REST 7 DAYS
     Dates: start: 20210319

REACTIONS (9)
  - Decreased appetite [None]
  - Stomatitis [None]
  - Dysphonia [None]
  - Arthralgia [None]
  - Dry skin [None]
  - Off label use [None]
  - Weight decreased [None]
  - Pruritus [None]
  - Skin disorder [None]

NARRATIVE: CASE EVENT DATE: 20210319
